FAERS Safety Report 8030604-9 (Version None)
Quarter: 2012Q1

REPORT INFORMATION
  Report Type: 
  Country: None (occurrence: None)
  Receive Date: 20120109
  Receipt Date: 20111228
  Transmission Date: 20120608
  Serious: Yes (Death, Hospitalization)
  Sender: FDA-Public Use
  Company Number: US-JNJFOC-20080102114

PATIENT
  Age: 52 Year
  Sex: Male

DRUGS (9)
  1. IBUPROFEN [Suspect]
     Indication: SUICIDE ATTEMPT
     Route: 048
  2. CARDIAC GLYCOSIDE [Suspect]
     Indication: SUICIDE ATTEMPT
     Route: 048
  3. CARVEDILOL [Suspect]
     Indication: SUICIDE ATTEMPT
     Route: 048
  4. TEMAZEPAM [Suspect]
     Indication: SUICIDE ATTEMPT
     Route: 048
  5. OXAZEPAM [Suspect]
     Indication: SUICIDE ATTEMPT
     Route: 048
  6. OPIOID/ACETAMINOPHEN [Suspect]
     Indication: SUICIDE ATTEMPT
     Route: 048
  7. PROPAFENONE HCL [Suspect]
     Indication: SUICIDE ATTEMPT
     Route: 048
  8. DIURETIC [Suspect]
     Indication: SUICIDE ATTEMPT
     Route: 048
  9. WARFARIN SODIUM [Suspect]
     Indication: SUICIDE ATTEMPT
     Route: 048

REACTIONS (1)
  - TOXICITY TO VARIOUS AGENTS [None]
